FAERS Safety Report 5097674-1 (Version None)
Quarter: 2006Q3

REPORT INFORMATION
  Report Type: 
  Country: None (occurrence: None)
  Receive Date: 20060901
  Receipt Date: 20060829
  Transmission Date: 20061208
  Serious: Yes (Hospitalization)
  Sender: FDA-Public Use
  Company Number: 2005BI020780

PATIENT
  Age: 56 Year
  Sex: Female

DRUGS (11)
  1. AVONEX [Suspect]
     Indication: MULTIPLE SCLEROSIS
     Dosage: 30 UG; QW; IM
     Route: 030
     Dates: start: 19970301, end: 20030101
  2. AVONEX [Suspect]
     Indication: MULTIPLE SCLEROSIS
     Dosage: 30 UG; QW; IM
     Route: 030
     Dates: start: 20030101
  3. CYMBALTA [Concomitant]
  4. AMANTADINE HCL [Concomitant]
  5. PROTONIX [Concomitant]
  6. COLACE [Concomitant]
  7. FOLIC ACID [Concomitant]
  8. VYTORIN [Concomitant]
  9. LOPRESSOR [Concomitant]
  10. DIGOXIN [Concomitant]
  11. LASIX [Concomitant]

REACTIONS (2)
  - ANGINA UNSTABLE [None]
  - ARTERIOSCLEROSIS CORONARY ARTERY [None]
